FAERS Safety Report 21331661 (Version 1)
Quarter: 2022Q3

REPORT INFORMATION
  Report Type: Spontaneous
  Country: US (occurrence: US)
  Receive Date: 20220914
  Receipt Date: 20220914
  Transmission Date: 20221026
  Serious: No
  Sender: FDA-Public Use
  Company Number: US-TAKEDA-2022TUS063165

PATIENT
  Age: 72 Year
  Sex: Female
  Weight: 58.503 kg

DRUGS (1)
  1. NINLARO [Suspect]
     Active Substance: IXAZOMIB CITRATE
     Indication: Plasma cell myeloma
     Dosage: 4 MILLIGRAM
     Route: 048
     Dates: start: 20220814

REACTIONS (2)
  - Rash pruritic [Unknown]
  - Nausea [Unknown]

NARRATIVE: CASE EVENT DATE: 20220814
